FAERS Safety Report 20115579 (Version 2)
Quarter: 2022Q1

REPORT INFORMATION
  Report Type: Spontaneous
  Country: CH (occurrence: CH)
  Receive Date: 20211126
  Receipt Date: 20220201
  Transmission Date: 20220423
  Serious: Yes (Other)
  Sender: FDA-Public Use
  Company Number: CH-002147023-NVSC2021CH260930

PATIENT
  Sex: Male

DRUGS (1)
  1. LUCENTIS [Suspect]
     Active Substance: RANIBIZUMAB
     Indication: Chorioretinopathy
     Dosage: 1650 MG, QMO
     Route: 050
     Dates: start: 2019

REACTIONS (2)
  - Chorioretinopathy [Unknown]
  - Product use in unapproved indication [Unknown]
